FAERS Safety Report 8136916-2 (Version None)
Quarter: 2012Q1

REPORT INFORMATION
  Report Type: 
  Country: None (occurrence: None)
  Receive Date: 20120214
  Receipt Date: 20120209
  Transmission Date: 20120608
  Serious: Yes (Life-Threatening, Hospitalization, Other)
  Sender: FDA-Public Use
  Company Number: BR-ASTRAZENECA-2011SE47994

PATIENT
  Age: 68 Year
  Sex: Female
  Weight: 90 kg

DRUGS (6)
  1. FUROSEMIDE [Concomitant]
     Indication: HYPERTENSION
     Route: 048
  2. ENALAPRIL [Concomitant]
     Indication: HYPERTENSION
     Route: 048
  3. ZESTRIL [Suspect]
     Route: 048
     Dates: start: 20110401
  4. LEVOTHYROXINE SODIUM [Concomitant]
     Indication: HYPOTHYROIDISM
     Dosage: DAILY
     Route: 048
  5. MULTI-VITAMINS [Concomitant]
     Indication: BURSITIS
     Dosage: DAILY
     Route: 048
  6. ZESTRIL [Suspect]
     Indication: HYPERTENSION
     Route: 048
     Dates: start: 20060101, end: 20110301

REACTIONS (11)
  - PNEUMONIA [None]
  - DYSPNOEA [None]
  - DRUG DOSE OMISSION [None]
  - BRONCHITIS [None]
  - SWELLING [None]
  - WEIGHT DECREASED [None]
  - HYPERAESTHESIA [None]
  - DIABETES MELLITUS [None]
  - TOTAL LUNG CAPACITY DECREASED [None]
  - COMA [None]
  - OEDEMA PERIPHERAL [None]
